FAERS Safety Report 8154630-4 (Version None)
Quarter: 2012Q1

REPORT INFORMATION
  Report Type: 
  Country: None (occurrence: None)
  Receive Date: 20120221
  Receipt Date: 20120213
  Transmission Date: 20120608
  Serious: Yes (Hospitalization, Other)
  Sender: FDA-Public Use
  Company Number: PHHY2012JP012571

PATIENT
  Age: 5 Year
  Sex: Female

DRUGS (8)
  1. ETOPOSIDE [Suspect]
     Indication: NONGERMINOMATOUS GERM CELL TUMOUR OF THE CNS
     Dosage: FIVE COURSES:  100 MG/M2, FOR THREE CONSECUTIVE DAYS BEFORE OPERATION
  2. CORTISOL [Concomitant]
     Indication: HORMONE REPLACEMENT THERAPY
  3. RADIOTHERAPY [Suspect]
     Indication: NONGERMINOMATOUS GERM CELL TUMOUR OF THE CNS
     Dosage: EXTENDED LOCAL 30 GY PLUS LOCAL 20 GY
  4. LEVOTHYROXINE SODIUM [Concomitant]
     Indication: HORMONE REPLACEMENT THERAPY
  5. ETOPOSIDE [Suspect]
     Dosage: THREE COURSES:  100 MG/M2, AFTER OPERATION
  6. 1-DESAMINO-8-D-ARGININE [Concomitant]
     Indication: HORMONE REPLACEMENT THERAPY
  7. CARBOPLATIN [Suspect]
     Indication: NONGERMINOMATOUS GERM CELL TUMOUR OF THE CNS
     Dosage: FIVE COURSES: 400 MG/M2, FOR ONE DAY, BEFORE OPERATION
  8. CARBOPLATIN [Suspect]
     Dosage: THREE COURSES: 400 MG/M2,AFTER OPERATION

REACTIONS (2)
  - MENTAL IMPAIRMENT [None]
  - CEREBRAL HAEMANGIOMA [None]
